FAERS Safety Report 7164175-6 (Version None)
Quarter: 2010Q4

REPORT INFORMATION
  Report Type: 
  Country: None (occurrence: None)
  Receive Date: 20101215
  Receipt Date: 20101202
  Transmission Date: 20110411
  Serious: Yes (Other)
  Sender: FDA-Public Use
  Company Number: US-PFIZER INC-2010164941

PATIENT
  Age: 49 Year
  Sex: Female
  Weight: 70.3 kg

DRUGS (2)
  1. ROBITUSSIN COUGH AND CHEST CONGESTION DM MAX [Suspect]
     Indication: NASOPHARYNGITIS
     Dosage: 1 TSP ONE TIME
     Route: 048
     Dates: start: 20101128, end: 20101128
  2. SYNTHROID [Suspect]
     Indication: HYPOTHYROIDISM
     Dosage: UNK
     Route: 048

REACTIONS (3)
  - CHOKING [None]
  - DRUG INTERACTION [None]
  - DYSPNOEA [None]
